FAERS Safety Report 14545475 (Version 2)
Quarter: 2018Q2

REPORT INFORMATION
  Report Type: Report from Study
  Country: US (occurrence: US)
  Receive Date: 20180219
  Receipt Date: 20180415
  Transmission Date: 20180711
  Serious: Yes (Hospitalization)
  Sender: FDA-Public Use
  Company Number: PHEH2018US004915

PATIENT
  Sex: Female

DRUGS (1)
  1. TOBI PODHALER [Suspect]
     Active Substance: TOBRAMYCIN
     Indication: TRAUMATIC LUNG INJURY
     Route: 055

REACTIONS (6)
  - Bronchiectasis [Unknown]
  - Product use in unapproved indication [Unknown]
  - Pneumonia [Unknown]
  - Lung disorder [Unknown]
  - Bacterial infection [Unknown]
  - Pseudomonas bronchitis [Unknown]
